FAERS Safety Report 9424646 (Version 16)
Quarter: 2020Q2

REPORT INFORMATION
  Report Type: Report from Study
  Country: CA (occurrence: CA)
  Receive Date: 20130729
  Receipt Date: 20200514
  Transmission Date: 20200714
  Serious: Yes (Death, Life-Threatening, Hospitalization, Other)
  Sender: FDA-Public Use
  Company Number: CA-AMGEN-CANCT2013052085

PATIENT
  Age: 73 Year
  Sex: Male

DRUGS (26)
  1. MIDAZOLAM HYDROCHLORIDE. [Concomitant]
     Active Substance: MIDAZOLAM HYDROCHLORIDE
     Dosage: 6 MILLIGRAM
     Route: 065
     Dates: start: 20130905, end: 20130905
  2. FENTANYL                           /00174602/ [Concomitant]
     Active Substance: FENTANYL
     Dosage: 75 MILLIGRAM
     Route: 065
     Dates: start: 20130905, end: 20130905
  3. HEPARIN [Concomitant]
     Active Substance: HEPARIN SODIUM
     Dosage: 5000 UNIT, BID
     Route: 058
     Dates: start: 20130830, end: 20130914
  4. NIZORAL [Concomitant]
     Active Substance: KETOCONAZOLE
     Indication: FUNGAL INFECTION
     Dosage: UNK UNK, BID
     Route: 061
     Dates: start: 20111215, end: 20120202
  5. KENALOG [Concomitant]
     Active Substance: TRIAMCINOLONE ACETONIDE
     Indication: RHEUMATOID ARTHRITIS
     Dosage: 0.25 MILLIGRAM (SINGLE)
     Route: 014
     Dates: start: 20120203, end: 20120203
  6. WILD SALMON AND FISH OILS OMEGA 3 COMPLEX [Concomitant]
     Dosage: UNK
  7. RAMIPRIL. [Concomitant]
     Active Substance: RAMIPRIL
     Indication: HYPERTENSION
     Dosage: 15 MILLIGRAM, QD
     Route: 048
     Dates: start: 2005, end: 20130703
  8. AZATHIOPRINE. [Concomitant]
     Active Substance: AZATHIOPRINE
     Dosage: 50 MILLIGRAM, QD
     Route: 048
     Dates: start: 20130826
  9. MUPIROCIN. [Concomitant]
     Active Substance: MUPIROCIN
     Dosage: 1 UNIT NOT REPORTED, BID
     Route: 061
     Dates: start: 20130826, end: 20130914
  10. NAPROXEN. [Concomitant]
     Active Substance: NAPROXEN
     Indication: RHEUMATOID ARTHRITIS
     Dosage: 220 MILLIGRAM
     Route: 048
     Dates: start: 20111224, end: 20120630
  11. FOLIC ACID. [Concomitant]
     Active Substance: FOLIC ACID
     Dosage: 5 MILLIGRAM
     Route: 048
     Dates: start: 2009, end: 20130715
  12. ASPIRIN. [Concomitant]
     Active Substance: ASPIRIN
     Dosage: 81 MILLIGRAM, QD
     Route: 048
     Dates: start: 2005
  13. TINACTIN [Concomitant]
     Active Substance: TOLNAFTATE
     Indication: FUNGAL INFECTION
     Dosage: UNK
     Route: 061
     Dates: start: 20120203, end: 20120303
  14. LIPITOR [Concomitant]
     Active Substance: ATORVASTATIN CALCIUM
     Indication: HYPERLIPIDAEMIA
     Dosage: UNK UNK, QD
     Route: 048
     Dates: start: 2005, end: 20130715
  15. METHOTREXATE. [Suspect]
     Active Substance: METHOTREXATE
     Dosage: 20 MILLIGRAM
     Route: 048
     Dates: start: 20130822, end: 20130826
  16. VITAMIN D3 [Concomitant]
     Active Substance: CHOLECALCIFEROL
     Dosage: UNK UNK, QD
     Route: 048
     Dates: start: 2009, end: 20130715
  17. NORVASC [Concomitant]
     Active Substance: AMLODIPINE BESYLATE
     Indication: HYPERTENSION
     Dosage: 5 MILLIGRAM, QD
     Route: 048
     Dates: start: 2005, end: 20130703
  18. ETANERCEPT [Suspect]
     Active Substance: ETANERCEPT
     Indication: RHEUMATOID ARTHRITIS
     Dosage: 50 MILLIGRAM, QWK
     Route: 058
     Dates: start: 20130606
  19. METHOTREXATE. [Suspect]
     Active Substance: METHOTREXATE
     Indication: RHEUMATOID ARTHRITIS
     Dosage: 22.5 MILLIGRAM
     Route: 048
     Dates: start: 2009, end: 20130223
  20. AMIODARONE [Concomitant]
     Active Substance: AMIODARONE
     Dosage: 300 MILLIGRAM (SINGLE)
     Route: 042
     Dates: start: 20130905, end: 20130905
  21. METHOTRIMEPRAZINE                  /00038601/ [Concomitant]
     Active Substance: LEVOMEPROMAZINE
     Dosage: 12.5 MILLIGRAM, AS NECESSARY
     Route: 042
     Dates: start: 20130830
  22. METHOTREXATE. [Suspect]
     Active Substance: METHOTREXATE
     Dosage: 15 MILLIGRAM
     Route: 048
     Dates: start: 20130224, end: 20130703
  23. METHOTREXATE. [Suspect]
     Active Substance: METHOTREXATE
     Dosage: 12.5 MILLIGRAM
     Route: 048
     Dates: start: 20130815, end: 20130821
  24. FLUMAZENIL. [Concomitant]
     Active Substance: FLUMAZENIL
     Dosage: 0.3 MILLIGRAM SINGLE
     Route: 042
     Dates: start: 20130905, end: 20130905
  25. TYLENOL ARTHRITIS PAIN [Concomitant]
     Active Substance: ACETAMINOPHEN
     Indication: RHEUMATOID ARTHRITIS
     Dosage: 650 MILLIGRAM, AS NECESSARY
     Route: 048
     Dates: start: 20111218, end: 20120630
  26. KEFLEX [Concomitant]
     Active Substance: CEPHALEXIN
     Dosage: 2000 MILLIGRAM, QID
     Route: 048
     Dates: start: 20130529, end: 20130605

REACTIONS (10)
  - Atrial fibrillation [Not Recovered/Not Resolved]
  - Septic shock [Not Recovered/Not Resolved]
  - Acute kidney injury [Not Recovered/Not Resolved]
  - Hypotension [Not Recovered/Not Resolved]
  - Hypersensitivity vasculitis [Fatal]
  - Respiratory failure [Not Recovered/Not Resolved]
  - Paraproteinaemia [Not Recovered/Not Resolved]
  - Pneumonia [Not Recovered/Not Resolved]
  - Coagulopathy [Not Recovered/Not Resolved]
  - Encephalopathy [Not Recovered/Not Resolved]

NARRATIVE: CASE EVENT DATE: 20130706
